FAERS Safety Report 10263623 (Version 1)
Quarter: 2014Q2

REPORT INFORMATION
  Report Type: Report from Study
  Country: US (occurrence: US)
  Receive Date: 20140626
  Receipt Date: 20140626
  Transmission Date: 20141212
  Serious: No
  Sender: FDA-Public Use
  Company Number: US-MYLANLABS-2013S1021310

PATIENT
  Age: 81 Year
  Sex: Male

DRUGS (12)
  1. CLOZAPINE TABLETS [Suspect]
     Route: 048
     Dates: start: 20130907, end: 20130907
  2. CLOZAPINE TABLETS [Suspect]
     Route: 048
     Dates: start: 20130908, end: 20130908
  3. ABILIFY [Concomitant]
     Route: 048
  4. FENTANYL TRANSDERMAL SYSTEM [Concomitant]
     Dosage: CHANGES PATCHES Q. 72 HOURS
     Route: 062
  5. MYLANTA [Concomitant]
     Route: 048
  6. LOPRESSOR [Concomitant]
     Route: 048
  7. MOM [Concomitant]
     Route: 048
  8. DULCOLAX /00064401/ [Concomitant]
     Route: 054
  9. COGENTIN [Concomitant]
     Route: 048
  10. TYLENOL [Concomitant]
     Route: 048
  11. DUONEB [Concomitant]
     Route: 055
  12. ASA [Concomitant]

REACTIONS (4)
  - Confusional state [Not Recovered/Not Resolved]
  - Asthenia [Not Recovered/Not Resolved]
  - Somnolence [Not Recovered/Not Resolved]
  - Fall [Not Recovered/Not Resolved]
